FAERS Safety Report 8355551-4 (Version None)
Quarter: 2012Q2

REPORT INFORMATION
  Report Type: 
  Country: None (occurrence: None)
  Receive Date: 20120513
  Receipt Date: 20120504
  Transmission Date: 20120825
  Serious: Yes (Other)
  Sender: FDA-Public Use
  Company Number: US-ELI_LILLY_AND_COMPANY-US201205002600

PATIENT
  Age: 35 Year
  Sex: Female

DRUGS (2)
  1. TYLENOL PM [Concomitant]
     Indication: SLEEP DISORDER
     Dosage: UNK
  2. FORTEO [Suspect]
     Indication: OSTEOPOROSIS
     Dosage: UNK UNK, QD
     Dates: start: 20120216

REACTIONS (7)
  - WEIGHT DECREASED [None]
  - DECREASED APPETITE [None]
  - HEPATIC FAILURE [None]
  - DRUG DOSE OMISSION [None]
  - INCORRECT DOSE ADMINISTERED [None]
  - MALNUTRITION [None]
  - RENAL FAILURE [None]
